FAERS Safety Report 9870689 (Version 2)
Quarter: 2014Q1

REPORT INFORMATION
  Report Type: Spontaneous
  Country: BG (occurrence: BG)
  Receive Date: 20140205
  Receipt Date: 20140205
  Transmission Date: 20141002
  Serious: Yes (Hospitalization)
  Sender: FDA-Public Use
  Company Number: BG-UCBSA-108981

PATIENT
  Sex: Male

DRUGS (3)
  1. VIMPAT [Suspect]
     Indication: EPILEPSY
     Dosage: UNIT: 1 TABLET
     Route: 048
     Dates: start: 201312, end: 20140108
  2. KEPPRA [Concomitant]
     Indication: EPILEPSY
     Route: 048
  3. LAMICTAL [Concomitant]
     Indication: EPILEPSY
     Route: 048

REACTIONS (2)
  - Glioma [Unknown]
  - Drug ineffective [Recovered/Resolved]
